FAERS Safety Report 22224332 (Version 2)
Quarter: 2023Q2

REPORT INFORMATION
  Report Type: Spontaneous
  Country: CZ (occurrence: CZ)
  Receive Date: 20230418
  Receipt Date: 20230424
  Transmission Date: 20230722
  Serious: No
  Sender: FDA-Public Use
  Company Number: CZ-MYLANLABS-2023M1040432

PATIENT
  Age: 53 Year
  Sex: Female

DRUGS (10)
  1. METOPROLOL [Suspect]
     Active Substance: METOPROLOL
     Indication: Atrial fibrillation
     Dosage: 50 MILLIGRAM (50 MG PER ORAL)
     Route: 048
  2. METOPROLOL [Suspect]
     Active Substance: METOPROLOL
     Dosage: 75 MILLIGRAM, BID (75 MG TWICE A DAY PER OS)
     Route: 048
  3. METOPROLOL [Suspect]
     Active Substance: METOPROLOL
     Dosage: 100 MILLIGRAM, BID (100 MG, 1-0-1 DOSAGE)
     Route: 065
  4. METOPROLOL [Suspect]
     Active Substance: METOPROLOL
     Indication: Atrial fibrillation
     Dosage: 75 MILLIGRAM, BID (75 MG TWICE A DAY)
     Route: 042
  5. HEPARIN [Concomitant]
     Active Substance: HEPARIN SODIUM
     Dosage: LMWH (LOW MOLECULAR WEIGHT HEPARIN) IN THE ANTICOAGULANT DOSE
     Route: 065
  6. METHIMAZOLE [Concomitant]
     Active Substance: METHIMAZOLE
     Dosage: 40 MILLIGRAM, Q8H (40 MG I.V. EVERY 8 HOURS)
     Route: 042
  7. HYDROCORTISONE [Concomitant]
     Active Substance: HYDROCORTISONE
     Dosage: 50 MILLIGRAM, BID (50 MG I.V. EVERY 12 HOURS)
     Route: 042
  8. RAMIPRIL [Concomitant]
     Active Substance: RAMIPRIL
     Dosage: 1.25 MILLIGRAM, QD (1.25 MG, 1-0-0 DOSAGE)
     Route: 065
  9. RIVAROXABAN [Concomitant]
     Active Substance: RIVAROXABAN
     Dosage: 20 MILLIGRAM, QD (20 MG, 1-0-0 DOSAGE)
     Route: 065
  10. OMEPRAZOLE [Concomitant]
     Active Substance: OMEPRAZOLE
     Dosage: 40 MILLIGRAM, QD (40 MG, 1-0-0 DOSAGE)
     Route: 065

REACTIONS (1)
  - Drug ineffective [Unknown]
